FAERS Safety Report 4953868-4 (Version None)
Quarter: 2006Q1

REPORT INFORMATION
  Report Type: 
  Country: None (occurrence: None)
  Receive Date: 20060324
  Receipt Date: 20060324
  Transmission Date: 20060701
  Serious: Yes (Hospitalization)
  Sender: FDA-Public Use
  Company Number: None

PATIENT
  Age: 60 Year
  Sex: Male
  Weight: 87 kg

DRUGS (3)
  1. LISINOPRIL [Suspect]
     Indication: HYPERTENSION
     Dosage: 40 MG QD
     Dates: start: 20020501, end: 20051001
  2. FELODIPINE [Concomitant]
  3. OMEPRAZOLE [Concomitant]

REACTIONS (1)
  - ANGIONEUROTIC OEDEMA [None]
